FAERS Safety Report 20228191 (Version 1)
Quarter: 2021Q4

REPORT INFORMATION
  Report Type: Report from Study
  Country: US (occurrence: US)
  Receive Date: 20211224
  Receipt Date: 20211224
  Transmission Date: 20220303
  Serious: Yes (Hospitalization, Other)
  Sender: FDA-Public Use
  Company Number: US-SAARTEMIS-SAC202012210349

PATIENT
  Age: 66 Year
  Sex: Female

DRUGS (3)
  1. DUPILUMAB [Suspect]
     Active Substance: DUPILUMAB
     Indication: Dermatitis atopic
     Dosage: 600 MG, 1X
     Route: 058
     Dates: start: 20201021, end: 20201021
  2. DUPILUMAB [Suspect]
     Active Substance: DUPILUMAB
     Dosage: 300 MG, QOW
     Route: 058
     Dates: start: 2020, end: 2020
  3. DUPILUMAB [Suspect]
     Active Substance: DUPILUMAB
     Dosage: UNK
     Dates: start: 20211217

REACTIONS (9)
  - COVID-19 [Recovered/Resolved]
  - Infection [Recovered/Resolved]
  - Product contamination [Recovered/Resolved]
  - Meningitis bacterial [Recovered/Resolved]
  - Seizure [Recovered/Resolved]
  - Herpes zoster [Recovered/Resolved]
  - Meningitis [Recovering/Resolving]
  - Alopecia [Not Recovered/Not Resolved]
  - Surgery [Recovering/Resolving]

NARRATIVE: CASE EVENT DATE: 20201123
